FAERS Safety Report 17411814 (Version 2)
Quarter: 2020Q1

REPORT INFORMATION
  Report Type: Spontaneous
  Country: IN (occurrence: IN)
  Receive Date: 20200213
  Receipt Date: 20200226
  Transmission Date: 20200409
  Serious: Yes (Other)
  Sender: FDA-Public Use
  Company Number: IN-MACLEODS PHARMACEUTICALS US LTD-MAC2020025066

PATIENT

DRUGS (5)
  1. METHOTREXATE. [Concomitant]
     Active Substance: METHOTREXATE
     Indication: NECROTISING SCLERITIS
     Dosage: 20 MILLIGRAM, Q.W. GIVEN FOR TREATMENT
     Route: 048
  2. METHOTREXATE. [Concomitant]
     Active Substance: METHOTREXATE
     Indication: GRANULOMATOSIS WITH POLYANGIITIS
     Dosage: 10 MILLIGRAM, Q.W.
     Route: 048
  3. FOLIC ACID. [Concomitant]
     Active Substance: FOLIC ACID
     Indication: GRANULOMATOSIS WITH POLYANGIITIS
     Dosage: 5 MILLIGRAM
     Route: 048
  4. TRIAMCINOLONE ACETONIDE. [Suspect]
     Active Substance: TRIAMCINOLONE ACETONIDE
     Indication: SCLERITIS
     Dosage: 40 MG/ML, SUSPENSION, THREE SUBTENONS SUSPENSION FOR INJECTION
     Route: 031
  5. FOLIC ACID. [Concomitant]
     Active Substance: FOLIC ACID
     Indication: NECROTISING SCLERITIS
     Dosage: 5 MILLIGRAM, FOR TREATMENT
     Route: 048

REACTIONS (5)
  - Necrotising scleritis [Recovering/Resolving]
  - Cataract [Unknown]
  - Injection site reaction [Recovering/Resolving]
  - Treatment noncompliance [Unknown]
  - Scleral disorder [Recovering/Resolving]
